FAERS Safety Report 24719886 (Version 1)
Quarter: 2024Q4

REPORT INFORMATION
  Report Type: Spontaneous
  Country: IN (occurrence: IN)
  Receive Date: 20241211
  Receipt Date: 20241211
  Transmission Date: 20250115
  Serious: Yes (Death)
  Sender: ROCHE
  Company Number: IN-ROCHE-3554119

PATIENT
  Age: 31 Year
  Sex: Female
  Weight: 33 kg

DRUGS (3)
  1. POLIVY [Suspect]
     Active Substance: POLATUZUMAB VEDOTIN-PIIQ
     Indication: Grey zone lymphoma
     Dosage: 60 MG DOSES  FOR 33 KG AND EVERY 27 DAY.
     Route: 042
     Dates: start: 20240423
  2. POLIVY [Suspect]
     Active Substance: POLATUZUMAB VEDOTIN-PIIQ
     Dosage: 60 MG DOSES  FOR 33 KG AND EVERY 27 DAY.
     Route: 042
     Dates: start: 20240423
  3. POLIVY [Suspect]
     Active Substance: POLATUZUMAB VEDOTIN-PIIQ
     Route: 042

REACTIONS (4)
  - Off label use [Unknown]
  - Off label use [Unknown]
  - Platelet count decreased [Unknown]
  - Death [Fatal]

NARRATIVE: CASE EVENT DATE: 20241104
